FAERS Safety Report 4369933-9 (Version None)
Quarter: 2004Q2

REPORT INFORMATION
  Report Type: 
  Country: None (occurrence: None)
  Receive Date: 20040603
  Receipt Date: 20040514
  Transmission Date: 20050107
  Serious: Yes (Hospitalization)
  Sender: FDA-Public Use
  Company Number: DE-BRISTOL-MYERS SQUIBB COMPANY-12601555

PATIENT
  Age: 77 Year
  Sex: Female

DRUGS (5)
  1. METFORMIN HCL [Interacting]
     Indication: DIABETES MELLITUS NON-INSULIN-DEPENDENT
     Dosage: THERAPY INTERRUPTED ON 23-JAN-2004 AND RESUMED ON 28-JAN-2004 AT A REDUCED DOSE OF 850MG TWICE DAILY
     Route: 048
     Dates: start: 20000101
  2. ENADURA [Interacting]
     Indication: HYPERTENSION
     Route: 048
     Dates: start: 20020101
  3. CORDANUM [Interacting]
     Indication: HYPERTENSION
     Route: 048
     Dates: start: 20000101
  4. METFORMIN HCL [Suspect]
     Indication: DIABETES MELLITUS NON-INSULIN-DEPENDENT
     Route: 048
     Dates: start: 20020101, end: 20040123
  5. ASPIRIN [Concomitant]
     Indication: THROMBOSIS PROPHYLAXIS
     Route: 048

REACTIONS (4)
  - ABDOMINAL PAIN UPPER [None]
  - BLOOD PRESSURE SYSTOLIC INCREASED [None]
  - DRUG INTERACTION [None]
  - HYPOGLYCAEMIA [None]
